FAERS Safety Report 9474906 (Version 1)
Quarter: 2013Q3

REPORT INFORMATION
  Report Type: Spontaneous
  Country: US (occurrence: US)
  Receive Date: 20130823
  Receipt Date: 20130823
  Transmission Date: 20140515
  Serious: Yes (Other)
  Sender: FDA-Public Use
  Company Number: US-ASTRAZENECA-2013SE63889

PATIENT
  Age: 55 Year
  Sex: Female

DRUGS (9)
  1. BRILINTA [Suspect]
     Route: 048
     Dates: start: 201305
  2. BRILINTA [Suspect]
     Route: 048
     Dates: start: 201305, end: 201308
  3. PREDNISOLONE [Suspect]
     Indication: HEART TRANSPLANT
  4. LIPID AGENTS [Concomitant]
  5. ASA [Concomitant]
     Indication: STENT PLACEMENT
  6. ANTIHYPERTENSIVES [Concomitant]
  7. IMMUNOSUPPRESSANTS UNSPECIFIED [Concomitant]
  8. CLOPIDOGREL [Concomitant]
     Route: 048
  9. CLOPIDOGREL [Concomitant]
     Route: 048

REACTIONS (5)
  - Anaemia [Unknown]
  - Epistaxis [Unknown]
  - Fatigue [Unknown]
  - Dyspnoea [Unknown]
  - Contusion [Unknown]
